FAERS Safety Report 18396297 (Version 7)
Quarter: 2021Q3

REPORT INFORMATION
  Report Type: Other
  Country: US (occurrence: US)
  Receive Date: 20201019
  Receipt Date: 20210721
  Transmission Date: 20211014
  Serious: Yes (Other)
  Sender: FDA-Public Use
  Company Number: US-ROCHE-2579723

PATIENT
  Sex: Female
  Weight: 88.98 kg

DRUGS (3)
  1. ACTEMRA [Suspect]
     Active Substance: TOCILIZUMAB
     Indication: OSTEOARTHRITIS
  2. ACTEMRA [Suspect]
     Active Substance: TOCILIZUMAB
     Indication: PSORIATIC ARTHROPATHY
     Route: 058
     Dates: start: 20191017
  3. ACTEMRA [Suspect]
     Active Substance: TOCILIZUMAB
     Indication: IRIDOCYCLITIS

REACTIONS (11)
  - Back pain [Unknown]
  - Off label use [Unknown]
  - Erythema [Unknown]
  - Swelling [Unknown]
  - Nerve compression [Unknown]
  - Vogt-Koyanagi-Harada disease [Unknown]
  - Immunodeficiency [Unknown]
  - Pruritus [Unknown]
  - Muscular weakness [Unknown]
  - Fall [Unknown]
  - Muscle spasms [Recovering/Resolving]
